FAERS Safety Report 8603344-2 (Version None)
Quarter: 2012Q3

REPORT INFORMATION
  Report Type: 
  Country: None (occurrence: None)
  Receive Date: 20120817
  Receipt Date: 20120814
  Transmission Date: 20120928
  Serious: Yes (Death)
  Sender: FDA-Public Use
  Company Number: US-CELGENEUS-163-21880-12071936

PATIENT
  Sex: Male

DRUGS (17)
  1. PLAVIX [Concomitant]
     Route: 065
  2. MULTI-VITAMINS [Concomitant]
     Route: 065
  3. LOSARTAN POTASSIUM [Concomitant]
     Route: 065
  4. CLONIDINE [Concomitant]
     Route: 065
  5. TYLENOL [Concomitant]
     Route: 065
  6. VITAMIN D + CALCIUM [Concomitant]
     Route: 065
  7. REVLIMID [Suspect]
     Indication: MULTIPLE MYELOMA
     Dosage: 10 MILLIGRAM
     Route: 048
     Dates: start: 20120622
  8. LIPITOR [Concomitant]
     Route: 065
  9. CYANOCOBALAMIN [Concomitant]
     Route: 065
  10. PROTONIX [Concomitant]
     Route: 065
  11. CLONIDINE [Concomitant]
     Route: 048
  12. ZOFRAN [Concomitant]
     Route: 065
  13. FOLIC ACID [Concomitant]
     Route: 065
  14. IRON [Concomitant]
     Route: 065
  15. TYLENOL PM [Concomitant]
     Route: 065
  16. DEXAMETHASONE [Concomitant]
     Route: 065
  17. BETIMOL [Concomitant]
     Route: 065

REACTIONS (3)
  - DEATH [None]
  - FATIGUE [None]
  - PAIN IN EXTREMITY [None]
